FAERS Safety Report 17830640 (Version 1)
Quarter: 2020Q2

REPORT INFORMATION
  Report Type: Spontaneous
  Country: US (occurrence: US)
  Receive Date: 20200527
  Receipt Date: 20200527
  Transmission Date: 20200714
  Serious: No
  Sender: FDA-Public Use
  Company Number: US-TARO-2019TAR00600

PATIENT
  Age: 71 Year
  Sex: Female
  Weight: 61.22 kg

DRUGS (2)
  1. TERCONAZOLE VAGINAL CREAM 0.8% [Suspect]
     Active Substance: TERCONAZOLE
     Dosage: 1 APPLICATORFUL, 1X/DAY AT NIGHT
     Route: 067
     Dates: start: 20190808, end: 20190808
  2. TERCONAZOLE VAGINAL CREAM 0.8% [Suspect]
     Active Substance: TERCONAZOLE
     Indication: VULVOVAGINAL MYCOTIC INFECTION
     Dosage: 1 APPLICATORFUL, 1X/DAY AT NIGHT
     Route: 067

REACTIONS (4)
  - Therapeutic product effect incomplete [Recovered/Resolved]
  - Accidental exposure to product [Recovered/Resolved]
  - Product dose omission [Recovered/Resolved]
  - Product quality issue [Recovered/Resolved]

NARRATIVE: CASE EVENT DATE: 20190808
